FAERS Safety Report 8338986-5 (Version None)
Quarter: 2012Q2

REPORT INFORMATION
  Report Type: 
  Country: None (occurrence: None)
  Receive Date: 20120507
  Receipt Date: 20120426
  Transmission Date: 20120825
  Serious: Yes (Other)
  Sender: FDA-Public Use
  Company Number: US-BAYER-2012-041574

PATIENT

DRUGS (2)
  1. NAPROXEN SODIUM [Suspect]
  2. ARNICA [Concomitant]
     Indication: PAIN IN EXTREMITY

REACTIONS (1)
  - APPARENT DEATH [None]
